FAERS Safety Report 9116546 (Version 1)
Quarter: 2013Q1

REPORT INFORMATION
  Report Type: Spontaneous
  Country: US (occurrence: US)
  Receive Date: 20130225
  Receipt Date: 20130225
  Transmission Date: 20140127
  Serious: Yes (Other)
  Sender: FDA-Public Use
  Company Number: US-RB-050197-13

PATIENT
  Age: 33 Year
  Sex: Female

DRUGS (4)
  1. MUCINEX DM MAXIMUM STRENGTH (GUAIFENESIN) [Suspect]
     Indication: PULMONARY CONGESTION
     Dosage: DRUG STARTED APPROXIMATELY 2 WEEKS AGO.DRUG ENDED ON 03-FEB-2013.
     Route: 048
     Dates: end: 20130203
  2. MUCINEX DM MAXIMUM STRENGTH (GUAIFENESIN) [Suspect]
     Indication: PULMONARY CONGESTION
     Dosage: DRUG STARTED APPROXIMATELY 2 WEEKS AGO.DRUG ENDED ON 03-FEB-2013.
     Route: 048
     Dates: end: 20130203
  3. MUCINEX DM MAXIMUM STRENGTH (DEXTROMETHORPHAN HYDROBROMIDE) [Suspect]
  4. IBUPROFEN [Concomitant]
     Indication: MUSCULOSKELETAL CHEST PAIN

REACTIONS (17)
  - Bronchopneumonia [Unknown]
  - Convulsion [Unknown]
  - Chest pain [Not Recovered/Not Resolved]
  - Palpitations [Unknown]
  - Hypoaesthesia [Unknown]
  - Disorientation [Unknown]
  - Dyspnoea [Unknown]
  - Headache [Not Recovered/Not Resolved]
  - Fatigue [Not Recovered/Not Resolved]
  - Paraesthesia [Unknown]
  - Dizziness [Not Recovered/Not Resolved]
  - Diarrhoea [Unknown]
  - Chest discomfort [Unknown]
  - Hypoaesthesia oral [Unknown]
  - Dehydration [Unknown]
  - Tremor [Unknown]
  - Communication disorder [Unknown]
